FAERS Safety Report 8762404 (Version 2)
Quarter: 2012Q4

REPORT INFORMATION
  Report Type: 
  Country: US (occurrence: US)
  Receive Date: 20120829
  Receipt Date: 20120912
  Transmission Date: 20130627
  Serious: Yes (Hospitalization, Other)
  Sender: FDA-Public Use
  Company Number: US-PFIZER INC-2012210455

PATIENT
  Age: 62 Year
  Sex: Female

DRUGS (4)
  1. EFFEXOR XR [Suspect]
     Indication: ANXIETY
     Dosage: 150 mg, daily
     Route: 048
  2. EFFEXOR XR [Suspect]
     Indication: DEPRESSION
  3. PROAIR HFA (ALBUTEROL) [Suspect]
     Indication: ASTHMA
     Dosage: UNK,as needed
  4. ZIAC [Concomitant]
     Indication: BLOOD PRESSURE ABNORMAL
     Dosage: 5 mg daily
     Route: 048

REACTIONS (1)
  - Pneumonia [Recovered/Resolved]
